FAERS Safety Report 8484220-5 (Version None)
Quarter: 2012Q3

REPORT INFORMATION
  Report Type: 
  Country: None (occurrence: None)
  Receive Date: 20120703
  Receipt Date: 20120627
  Transmission Date: 20120928
  Serious: Yes (Other)
  Sender: FDA-Public Use
  Company Number: CA-JNJFOC-20120407290

PATIENT
  Sex: Female

DRUGS (3)
  1. ALL OTHER THERAPEUTIC AGENTS [Concomitant]
  2. DOVOBET [Concomitant]
  3. STELARA [Suspect]
     Indication: PSORIASIS
     Dates: start: 20111003

REACTIONS (2)
  - RESPIRATORY TRACT INFECTION [None]
  - DRUG INEFFECTIVE [None]
